FAERS Safety Report 10011482 (Version 1)
Quarter: 2014Q1

REPORT INFORMATION
  Report Type: Spontaneous
  Country: TN (occurrence: TN)
  Receive Date: 20140314
  Receipt Date: 20140314
  Transmission Date: 20141002
  Serious: Yes (Disabling)
  Sender: FDA-Public Use
  Company Number: PHHY2014TN028791

PATIENT
  Age: 28 Year
  Sex: Female

DRUGS (1)
  1. TASIGNA [Suspect]
     Indication: CHRONIC MYELOID LEUKAEMIA
     Dosage: 800 MG, DAILY
     Route: 048
     Dates: start: 201402

REACTIONS (5)
  - Skin toxicity [Recovering/Resolving]
  - Asthenia [Recovering/Resolving]
  - Lung disorder [Recovering/Resolving]
  - Leukaemia recurrent [Recovering/Resolving]
  - Chronic myeloid leukaemia [Recovering/Resolving]
